FAERS Safety Report 17535154 (Version 1)
Quarter: 2020Q1

REPORT INFORMATION
  Report Type: Spontaneous
  Country: US (occurrence: US)
  Receive Date: 20200312
  Receipt Date: 20200312
  Transmission Date: 20200409
  Serious: No
  Sender: FDA-Public Use
  Company Number: US-TEVA-2020-US-1191422

PATIENT
  Age: 94 Year
  Sex: Female

DRUGS (1)
  1. CLONAZEPAM. [Suspect]
     Active Substance: CLONAZEPAM
     Indication: ANXIETY
     Dosage: ORALLY DISINTEGRATING 0.25 MG
     Route: 048

REACTIONS (2)
  - Drug ineffective [Unknown]
  - Anxiety [Unknown]
